FAERS Safety Report 5815839-5 (Version None)
Quarter: 2008Q3

REPORT INFORMATION
  Report Type: 
  Country: None (occurrence: None)
  Receive Date: 20080721
  Receipt Date: 20080709
  Transmission Date: 20090109
  Serious: Yes (Hospitalization, Other)
  Sender: FDA-Public Use
  Company Number: US-JNJFOC-20080703050

PATIENT
  Sex: Female
  Weight: 47.63 kg

DRUGS (2)
  1. IBUPROFEN [Suspect]
     Indication: MIGRAINE
  2. REPLAX [Suspect]
     Indication: MIGRAINE

REACTIONS (3)
  - BLOOD CREATININE INCREASED [None]
  - HYPOTHYROIDISM [None]
  - NON-HODGKIN'S LYMPHOMA [None]
